FAERS Safety Report 17975918 (Version 2)
Quarter: 2020Q3

REPORT INFORMATION
  Report Type: Report from Study
  Country: US (occurrence: US)
  Receive Date: 20200702
  Receipt Date: 20200730
  Transmission Date: 20201103
  Serious: Yes (Life-Threatening, Hospitalization)
  Sender: FDA-Public Use
  Company Number: US-SA-2020SA130730

PATIENT

DRUGS (6)
  1. SARILUMAB [Suspect]
     Active Substance: SARILUMAB
     Dosage: 400 MG, SINGLE
     Route: 042
     Dates: start: 20200610, end: 20200610
  2. SARILUMAB [Suspect]
     Active Substance: SARILUMAB
     Dosage: 400 MG, SINGLE
     Route: 042
     Dates: start: 20200617, end: 20200617
  3. SARILUMAB [Suspect]
     Active Substance: SARILUMAB
     Dosage: 400 MG, SINGLE
     Route: 042
     Dates: start: 20200505, end: 20200505
  4. ACETAMINOPHEN. [Concomitant]
     Active Substance: ACETAMINOPHEN
     Indication: PYREXIA
     Dosage: 975 MG, QD
     Route: 048
     Dates: start: 20200425, end: 20200425
  5. PREDNISONE. [Concomitant]
     Active Substance: PREDNISONE
     Indication: INFLAMMATION
     Dosage: 70 MG, QD
     Route: 048
     Dates: start: 20200425, end: 20200509
  6. SARILUMAB [Suspect]
     Active Substance: SARILUMAB
     Indication: COVID-19
     Dosage: 400 MG, SINGLE
     Route: 042
     Dates: start: 20200504, end: 20200504

REACTIONS (6)
  - Serratia infection [Unknown]
  - Staphylococcal infection [Recovered/Resolved]
  - Enterococcal infection [Recovered/Resolved]
  - Escherichia infection [Recovered/Resolved]
  - Hypoxia [Recovered/Resolved]
  - Serratia infection [Recovered/Resolved]

NARRATIVE: CASE EVENT DATE: 20200508
